FAERS Safety Report 6804398-6 (Version None)
Quarter: 2010Q2

REPORT INFORMATION
  Report Type: 
  Country: None (occurrence: None)
  Receive Date: 20100628
  Receipt Date: 20070319
  Transmission Date: 20101027
  Serious: No
  Sender: FDA-Public Use
  Company Number: US-PFIZER INC-2007021080

PATIENT

DRUGS (1)
  1. XALATAN [Suspect]
     Dates: start: 20070118

REACTIONS (4)
  - ARTHRALGIA [None]
  - CHEST PAIN [None]
  - MUSCULOSKELETAL PAIN [None]
  - PAIN IN EXTREMITY [None]
